FAERS Safety Report 9789790 (Version 1)
Quarter: 2013Q4

REPORT INFORMATION
  Report Type: Spontaneous
  Country: DE (occurrence: None)
  Receive Date: 20131227
  Receipt Date: 20131227
  Transmission Date: 20140711
  Serious: Yes (Hospitalization)
  Sender: FDA-Public Use
  Company Number: AUR-APL-2013-10629

PATIENT
  Sex: Female

DRUGS (1)
  1. SERTRALINE [Suspect]
     Route: 048
     Dates: start: 201102, end: 201210

REACTIONS (1)
  - Enlarged clitoris [None]
